FAERS Safety Report 5721801-3 (Version None)
Quarter: 2008Q2

REPORT INFORMATION
  Report Type: 
  Country: None (occurrence: None)
  Receive Date: 20080429
  Receipt Date: 20070426
  Transmission Date: 20081010
  Serious: No
  Sender: FDA-Public Use
  Company Number: US-ASTRAZENECA-2007UW08210

PATIENT
  Age: 49 Year
  Sex: Male
  Weight: 104.3 kg

DRUGS (5)
  1. NEXIUM [Suspect]
     Indication: ULCER
     Route: 048
  2. VITAMIN E [Concomitant]
  3. ASCORBIC ACID [Concomitant]
  4. VITAMIN CAP [Concomitant]
  5. VITAMIN B COMPLEX CAP [Concomitant]

REACTIONS (2)
  - DYSPNOEA [None]
  - THROAT TIGHTNESS [None]
